FAERS Safety Report 4404280-8 (Version None)
Quarter: 2004Q3

REPORT INFORMATION
  Report Type: 
  Country: None (occurrence: None)
  Receive Date: 20040719
  Receipt Date: 20040705
  Transmission Date: 20050211
  Serious: Yes (Life-Threatening, Hospitalization)
  Sender: FDA-Public Use
  Company Number: 2004222540DE

PATIENT
  Age: 71 Year
  Sex: Female
  Weight: 69 kg

DRUGS (5)
  1. CELEBREX [Suspect]
     Indication: RHEUMATOID ARTHRITIS
     Dosage: 200 MG, BID,ORAL
     Route: 048
     Dates: start: 20020801, end: 20040109
  2. ARAVA [Suspect]
     Indication: RHEUMATOID ARTHRITIS
     Dosage: 20 MG, QD,ORAL
     Route: 048
     Dates: start: 20020101, end: 20040109
  3. METHOTREXATE [Suspect]
     Indication: RHEUMATOID ARTHRITIS
     Dosage: 25 MG, WEEKLY, SUBCUTANEOUS
     Route: 058
     Dates: start: 20031201, end: 20040109
  4. MOTRIN [Suspect]
     Indication: RHEUMATOID ARTHRITIS
     Dosage: 600 MG, BID,  ORAL
     Route: 048
     Dates: end: 20031101
  5. DELTA-CORTEF [Suspect]
     Indication: RHEUMATOID ARTHRITIS
     Dosage: 20 MG, QD, ORAL
     Route: 048

REACTIONS (8)
  - ANAEMIA [None]
  - BACK PAIN [None]
  - CANDIDA SEPSIS [None]
  - DRUG INTERACTION [None]
  - DYSPNOEA EXERTIONAL [None]
  - GASTRIC ULCER HAEMORRHAGE [None]
  - GASTRITIS EROSIVE [None]
  - GENERAL PHYSICAL HEALTH DETERIORATION [None]
